FAERS Safety Report 8986701 (Version 1)
Quarter: 2012Q4

REPORT INFORMATION
  Report Type: 
  Country: ES (occurrence: ES)
  Receive Date: 20121226
  Receipt Date: 20121226
  Transmission Date: 20130627
  Serious: Yes (Other)
  Sender: FDA-Public Use
  Company Number: ES-MYLANLABS-2012S1025808

PATIENT
  Age: 44 Year
  Sex: Female

DRUGS (6)
  1. CICLOSPORIN [Suspect]
     Indication: IMMUNOSUPPRESSANT DRUG THERAPY
     Route: 048
  2. FLUCONAZOLE [Interacting]
     Indication: VULVOVAGINAL CANDIDIASIS
     Dosage: 100 mg/day
     Route: 065
  3. KALETRA [Interacting]
     Indication: ANTIRETROVIRAL THERAPY
     Dosage: 400/100 mg twice daily
     Route: 065
  4. MYCOPHENOLATE [Concomitant]
     Indication: IMMUNOSUPPRESSANT DRUG THERAPY
     Route: 048
  5. RALTEGRAVIR [Concomitant]
     Indication: ANTIRETROVIRAL THERAPY
     Dosage: 800 mg/day
     Route: 065
  6. LAMIVUDINE [Concomitant]
     Indication: ANTIRETROVIRAL THERAPY
     Dosage: 300 mg/day
     Route: 065

REACTIONS (4)
  - Hepatotoxicity [Recovered/Resolved]
  - Immunosuppressant drug level increased [Recovered/Resolved]
  - Anxiety postoperative [Recovered/Resolved]
  - Drug interaction [Recovered/Resolved]
